FAERS Safety Report 17310552 (Version 1)
Quarter: 2020Q1

REPORT INFORMATION
  Report Type: Spontaneous
  Country: US (occurrence: US)
  Receive Date: 20200123
  Receipt Date: 20200123
  Transmission Date: 20200409
  Serious: No
  Sender: FDA-Public Use
  Company Number: US-ROCHE-2425379

PATIENT

DRUGS (7)
  1. RITUXAN [Suspect]
     Active Substance: RITUXIMAB
     Indication: PRODUCT USED FOR UNKNOWN INDICATION
     Route: 065
  2. SULFAMETHOXAZOLE [Concomitant]
     Active Substance: SULFAMETHOXAZOLE
  3. ZITHROMAX [Concomitant]
     Active Substance: AZITHROMYCIN DIHYDRATE
  4. LYRICA [Concomitant]
     Active Substance: PREGABALIN
     Indication: TRIGEMINAL NEURALGIA
     Dosage: 1 CAPSULE TWICE A DAY ORALLY
     Route: 048
  5. MOBIC [Concomitant]
     Active Substance: MELOXICAM
  6. ZETIA [Concomitant]
     Active Substance: EZETIMIBE
  7. CEFTIN [Concomitant]
     Active Substance: CEFUROXIME AXETIL

REACTIONS (1)
  - Drug hypersensitivity [Unknown]
